FAERS Safety Report 10278162 (Version 4)
Quarter: 2014Q3

REPORT INFORMATION
  Report Type: Report from Study
  Country: KH (occurrence: KH)
  Receive Date: 20140704
  Receipt Date: 20140814
  Transmission Date: 20150326
  Serious: Yes (Death, Hospitalization, Other)
  Sender: FDA-Public Use
  Company Number: PHHY2014KH081540

PATIENT
  Age: 32 Year
  Sex: Male
  Weight: 50 kg

DRUGS (5)
  1. GLIVEC [Suspect]
     Active Substance: IMATINIB MESYLATE
     Indication: BLAST CRISIS IN MYELOGENOUS LEUKAEMIA
     Dosage: 400 MG, UNK
     Route: 048
     Dates: start: 200807, end: 2009
  2. GLIVEC [Suspect]
     Active Substance: IMATINIB MESYLATE
     Dosage: 400 MG, UNK
     Route: 048
     Dates: start: 201402
  3. GLIVEC [Suspect]
     Active Substance: IMATINIB MESYLATE
     Dosage: 300 MG, UNK
     Route: 048
     Dates: start: 201305
  4. GLIVEC [Suspect]
     Active Substance: IMATINIB MESYLATE
     Dosage: 800 MG, DAILY
     Route: 048
  5. GLIVEC [Suspect]
     Active Substance: IMATINIB MESYLATE
     Dosage: 600 MG, UNK
     Route: 048

REACTIONS (14)
  - White blood cell count decreased [Unknown]
  - Blast crisis in myelogenous leukaemia [Fatal]
  - Jaundice [Unknown]
  - Thrombocytopenia [Fatal]
  - Nausea [Unknown]
  - Pneumonia klebsiella [Unknown]
  - Haemoglobin decreased [Unknown]
  - Gastrointestinal haemorrhage [Fatal]
  - Platelet count decreased [Unknown]
  - Pyrexia [Unknown]
  - Neutrophil count decreased [Unknown]
  - Abscess neck [Unknown]
  - Gingival bleeding [Unknown]
  - No therapeutic response [Unknown]

NARRATIVE: CASE EVENT DATE: 201402
